FAERS Safety Report 20078710 (Version 2)
Quarter: 2022Q3

REPORT INFORMATION
  Report Type: Spontaneous
  Country: US (occurrence: US)
  Receive Date: 20211117
  Receipt Date: 20220809
  Transmission Date: 20221027
  Serious: Yes (Disabling, Other)
  Sender: FDA-Public Use
  Company Number: US-SA-SAC20211112000053

PATIENT
  Age: 50 Year
  Sex: Male

DRUGS (1)
  1. ZANTAC [Suspect]
     Active Substance: RANITIDINE HYDROCHLORIDE
     Indication: Dyspepsia
     Dosage: 150 MG, PRN
     Route: 048
     Dates: start: 20110101, end: 20140101

REACTIONS (6)
  - Throat cancer [Unknown]
  - Disability [Unknown]
  - Deformity [Unknown]
  - Pain [Unknown]
  - Anhedonia [Unknown]
  - Anxiety [Unknown]

NARRATIVE: CASE EVENT DATE: 20170326
